FAERS Safety Report 7084000-1 (Version None)
Quarter: 2010Q4

REPORT INFORMATION
  Report Type: 
  Country: None (occurrence: None)
  Receive Date: 20101104
  Receipt Date: 20101026
  Transmission Date: 20110411
  Serious: Yes (Other)
  Sender: FDA-Public Use
  Company Number: JP-ABBOTT-10P-087-0681703-00

PATIENT
  Sex: Male
  Weight: 60 kg

DRUGS (8)
  1. HUMIRA [Suspect]
     Indication: PSORIASIS
     Route: 058
     Dates: start: 20100325, end: 20100325
  2. HUMIRA [Suspect]
     Route: 058
     Dates: start: 20100408, end: 20100617
  3. HUMIRA [Suspect]
     Route: 058
     Dates: start: 20100729
  4. BETAMETHASONE BUTYRATE PROPIONATE [Concomitant]
     Indication: PSORIASIS
     Route: 061
  5. CALCIPOTRIOL [Concomitant]
     Indication: PSORIASIS
     Route: 061
  6. CILOSTAZOL [Concomitant]
     Indication: CEREBRAL INFARCTION
     Route: 048
  7. RABEPRAZOLE SODIUM [Concomitant]
     Indication: GASTROINTESTINAL DISORDER
     Route: 048
  8. CILNIDIPINE [Concomitant]
     Indication: HYPERTENSION
     Route: 048

REACTIONS (1)
  - HEPATIC MASS [None]
